FAERS Safety Report 9276597 (Version 1)
Quarter: 2012Q4

REPORT INFORMATION
  Report Type: Spontaneous
  Country: US (occurrence: None)
  Receive Date: 20121109
  Receipt Date: 20121109
  Transmission Date: 20130627
  Serious: Yes (Hospitalization)
  Sender: FDA-Public Use
  Company Number: 2012S1000672

PATIENT
  Age: 46 Year
  Sex: Male

DRUGS (11)
  1. CUBICIN [Suspect]
  2. CEFAZOLIN [Concomitant]
  3. VANCOMYCIN [Concomitant]
  4. PIPERACILLIN [Concomitant]
  5. TAZOBACTAM [Concomitant]
  6. DOXYCYCLINE [Concomitant]
  7. CIPROFLOXACIN [Concomitant]
  8. FLUCONAZOLE [Concomitant]
  9. ANIDULAFUNGIN [Concomitant]
  10. VORICONAZOLE [Concomitant]
  11. ITRACONAZOLE [Concomitant]

REACTIONS (5)
  - Depressed level of consciousness [None]
  - Somnolence [None]
  - Asthenia [None]
  - Purulence [None]
  - Wound drainage [None]
